FAERS Safety Report 13743814 (Version 2)
Quarter: 2017Q3

REPORT INFORMATION
  Report Type: Spontaneous
  Country: US (occurrence: US)
  Receive Date: 20170711
  Receipt Date: 20170809
  Transmission Date: 20171127
  Serious: No
  Sender: FDA-Public Use
  Company Number: US-009507513-1706USA003782

PATIENT
  Age: 62 Year
  Sex: Female

DRUGS (2)
  1. GLOBULIN, IMMUNE [Concomitant]
     Active Substance: HUMAN IMMUNOGLOBULIN G
     Indication: CHORIOMENINGITIS LYMPHOCYTIC
     Dosage: 400 MG/KG, UNK
     Route: 042
  2. REBETOL [Suspect]
     Active Substance: RIBAVIRIN
     Indication: CHORIOMENINGITIS LYMPHOCYTIC
     Dosage: UNK
     Route: 048

REACTIONS (1)
  - Product use in unapproved indication [Unknown]
